FAERS Safety Report 5350929-5 (Version None)
Quarter: 2007Q2

REPORT INFORMATION
  Report Type: 
  Country: None (occurrence: None)
  Receive Date: 20070606
  Receipt Date: 20070522
  Transmission Date: 20071010
  Serious: Yes (Hospitalization)
  Sender: FDA-Public Use
  Company Number: 2007SS000027

PATIENT
  Age: 71 Year
  Sex: Male

DRUGS (1)
  1. MYOBLOC [Suspect]
     Indication: DRUG USE FOR UNKNOWN INDICATION
     Dosage: IM
     Route: 030
     Dates: start: 20060801, end: 20060801

REACTIONS (3)
  - DYSPHAGIA [None]
  - HIP ARTHROPLASTY [None]
  - MUSCLE ATROPHY [None]
